FAERS Safety Report 16694917 (Version 2)
Quarter: 2019Q3

REPORT INFORMATION
  Report Type: Spontaneous
  Country: DE (occurrence: DE)
  Receive Date: 20190812
  Receipt Date: 20190821
  Transmission Date: 20191004
  Serious: Yes (Other)
  Sender: FDA-Public Use
  Company Number: PHHY2019DE039676

PATIENT
  Age: 75 Year
  Sex: Female

DRUGS (1)
  1. METOHEXAL SUCC [Suspect]
     Active Substance: METOPROLOL SUCCINATE
     Indication: ATRIAL FIBRILLATION
     Dosage: 47.5 MG, BID
     Route: 048
     Dates: start: 20180131

REACTIONS (21)
  - Bronchitis bacterial [Unknown]
  - Eczema [Recovered/Resolved]
  - Pruritus [Recovered/Resolved]
  - Cardiac disorder [Recovered/Resolved]
  - Toothache [Unknown]
  - Cough [Recovered/Resolved]
  - Ear pain [Unknown]
  - Skin disorder [Recovered/Resolved]
  - Sputum purulent [Not Recovered/Not Resolved]
  - Asthenia [Not Recovered/Not Resolved]
  - Heart rate irregular [Unknown]
  - Insomnia [Unknown]
  - Chills [Unknown]
  - Blood pressure fluctuation [Unknown]
  - Secretion discharge [Unknown]
  - Skin necrosis [Recovering/Resolving]
  - Erythema [Unknown]
  - Heart rate increased [Recovered/Resolved]
  - Rash [Unknown]
  - Peripheral coldness [Unknown]
  - Skin texture abnormal [Not Recovered/Not Resolved]

NARRATIVE: CASE EVENT DATE: 2019
